FAERS Safety Report 19090028 (Version 1)
Quarter: 2021Q2

REPORT INFORMATION
  Report Type: Report from Study
  Country: GB (occurrence: GB)
  Receive Date: 20210404
  Receipt Date: 20210404
  Transmission Date: 20210717
  Serious: Yes (Hospitalization)
  Sender: FDA-Public Use
  Company Number: GB-TEVA-2021-GB-1895742

PATIENT
  Age: 82 Year
  Sex: Female
  Weight: 72.9 kg

DRUGS (22)
  1. CEPHALEXIN. [Concomitant]
     Active Substance: CEPHALEXIN
     Dosage: UNK
     Route: 048
     Dates: start: 20210209, end: 20210215
  2. SIMVASTATIN. [Concomitant]
     Active Substance: SIMVASTATIN
     Dosage: UNK
     Route: 048
     Dates: start: 2002
  3. BETAHISTINE [Concomitant]
     Active Substance: BETAHISTINE
     Dosage: UNK
     Route: 048
     Dates: start: 1982
  4. CEPHALEXIN. [Concomitant]
     Active Substance: CEPHALEXIN
     Dosage: UNK
     Route: 048
     Dates: start: 20201231, end: 20210106
  5. LEVOTHYROXINE. [Concomitant]
     Active Substance: LEVOTHYROXINE
     Dosage: UNK
     Route: 048
     Dates: start: 1983
  6. NAPROXEN. [Concomitant]
     Active Substance: NAPROXEN
     Dosage: UNK
     Route: 048
     Dates: start: 20200731, end: 20210217
  7. BENZBROMARONE [Concomitant]
     Active Substance: BENZBROMARONE
     Dosage: UNK
     Route: 048
     Dates: start: 20201111
  8. SODIUM BICARBONATE. [Concomitant]
     Active Substance: SODIUM BICARBONATE
     Dosage: UNK
     Route: 048
     Dates: start: 2002
  9. BISOPROLOL [Suspect]
     Active Substance: BISOPROLOL
     Dosage: 10 MG
     Route: 048
     Dates: start: 20190403, end: 20210226
  10. DARBEPOETIN ALFA [Suspect]
     Active Substance: DARBEPOETIN ALFA
     Indication: NEPHROGENIC ANAEMIA
     Dosage: UNK
     Route: 065
     Dates: start: 20190129
  11. HYDROCHLOROTHIAZIDE. [Suspect]
     Active Substance: HYDROCHLOROTHIAZIDE
     Indication: HYPERTENSION
     Dosage: 25 MG
     Route: 048
     Dates: start: 2001, end: 20210218
  12. BISOPROLOL [Suspect]
     Active Substance: BISOPROLOL
     Indication: PRODUCT USED FOR UNKNOWN INDICATION
     Dosage: 5 MG
     Route: 048
     Dates: start: 20210227
  13. IRBESARTAN. [Suspect]
     Active Substance: IRBESARTAN
     Dosage: 75 MG
     Route: 048
     Dates: start: 20210224, end: 20210226
  14. DAPRODUSTAT [Suspect]
     Active Substance: DAPRODUSTAT
     Indication: NEPHROGENIC ANAEMIA
     Dosage: UNK
     Route: 065
     Dates: start: 20190129
  15. BACTROBAN [Concomitant]
     Active Substance: MUPIROCIN\MUPIROCIN CALCIUM
     Dosage: UNK
     Route: 061
     Dates: start: 20190329
  16. OMEPRAZOLE. [Concomitant]
     Active Substance: OMEPRAZOLE
     Dosage: UNK
     Route: 048
     Dates: start: 1993
  17. ASPIRIN. [Concomitant]
     Active Substance: ASPIRIN
     Dosage: UNK
     Route: 048
     Dates: start: 2002, end: 20210301
  18. CO?DYDRAMOL [Concomitant]
     Active Substance: ACETAMINOPHEN\DIHYDROCODEINE
     Dosage: UNK
     Route: 048
     Dates: start: 2000, end: 20210217
  19. FUCIDIN [Concomitant]
     Active Substance: FUSIDATE SODIUM
     Dosage: UNK
     Route: 061
     Dates: start: 20200819
  20. DOXAZOSIN [Suspect]
     Active Substance: DOXAZOSIN MESYLATE
     Indication: PRODUCT USED FOR UNKNOWN INDICATION
     Dosage: 8 MG
     Route: 048
     Dates: start: 20190805, end: 20210226
  21. IRBESARTAN. [Suspect]
     Active Substance: IRBESARTAN
     Indication: HYPERTENSION
     Dosage: 300 MG
     Route: 048
     Dates: start: 2001, end: 20210218
  22. DARBEPOETIN ALFA [Suspect]
     Active Substance: DARBEPOETIN ALFA
     Dosage: UNK
     Route: 065
     Dates: start: 20190129

REACTIONS (2)
  - Renal impairment [Recovered/Resolved]
  - Mobility decreased [Recovering/Resolving]

NARRATIVE: CASE EVENT DATE: 20210118
